FAERS Safety Report 4724501-1 (Version None)
Quarter: 2005Q3

REPORT INFORMATION
  Report Type: 
  Country: None (occurrence: None)
  Receive Date: 20050726
  Receipt Date: 20050715
  Transmission Date: 20060218
  Serious: Yes (Hospitalization)
  Sender: FDA-Public Use
  Company Number: US-BRISTOL-MYERS SQUIBB COMPANY-13039540

PATIENT
  Age: 83 Year
  Sex: Female
  Weight: 63 kg

DRUGS (8)
  1. COUMADIN [Suspect]
     Indication: THROMBOSIS
  2. DIOVAN [Concomitant]
  3. NORVASC [Concomitant]
  4. LIPITOR [Concomitant]
  5. TOPROL-XL [Concomitant]
  6. ASPIRIN [Concomitant]
  7. AMBIEN [Concomitant]
     Indication: SLEEP DISORDER
  8. FEOSOL [Concomitant]

REACTIONS (2)
  - BLOOD IRON DECREASED [None]
  - PLATELET COUNT DECREASED [None]
